FAERS Safety Report 22163796 (Version 1)
Quarter: 2023Q2

REPORT INFORMATION
  Report Type: Spontaneous
  Country: IT (occurrence: IT)
  Receive Date: 20230401
  Receipt Date: 20230401
  Transmission Date: 20230722
  Serious: Yes (Life-Threatening)
  Sender: FDA-Public Use
  Company Number: None

PATIENT
  Age: 80 Year
  Sex: Female

DRUGS (9)
  1. OMEPRAZOLE SODIUM [Suspect]
     Active Substance: OMEPRAZOLE SODIUM
     Indication: Prophylaxis against gastrointestinal ulcer
     Dosage: 40 MG
     Route: 042
     Dates: start: 20230307, end: 20230307
  2. DEXAMETHASONE [Suspect]
     Active Substance: DEXAMETHASONE
     Indication: Prophylaxis
     Dosage: 4 MG
     Route: 042
     Dates: start: 20230307, end: 20230307
  3. PROPOFOL [Suspect]
     Active Substance: PROPOFOL
     Indication: General anaesthesia
     Dosage: 100 MG
     Route: 042
     Dates: start: 20230307, end: 20230307
  4. SUFENTANIL CITRATE [Suspect]
     Active Substance: SUFENTANIL CITRATE
     Indication: Analgesic therapy
     Dosage: 20 UG
     Route: 024
     Dates: start: 20230307, end: 20230307
  5. SUPRANE [Suspect]
     Active Substance: DESFLURANE
     Indication: General anaesthesia
     Dosage: UNK
     Dates: start: 20230307, end: 20230307
  6. ROCURONIUM BROMIDE [Suspect]
     Active Substance: ROCURONIUM BROMIDE
     Indication: Neuromuscular blockade
     Dosage: 30 MG
     Route: 042
     Dates: start: 20230307, end: 20230307
  7. LEVOBUPIVACAINE HYDROCHLORIDE [Suspect]
     Active Substance: LEVOBUPIVACAINE HYDROCHLORIDE
     Indication: Epidural anaesthesia
     Dosage: 15 MG
     Route: 024
     Dates: start: 20230307, end: 20230307
  8. CEFAZOLIN SODIUM [Suspect]
     Active Substance: CEFAZOLIN SODIUM
     Indication: Antibiotic prophylaxis
     Dosage: 2 G
     Route: 042
     Dates: start: 20230307, end: 20230307
  9. MIDAZOLAM HYDROCHLORIDE [Suspect]
     Active Substance: MIDAZOLAM HYDROCHLORIDE
     Indication: Sedation
     Dosage: 1 MG
     Route: 042
     Dates: start: 20230307, end: 20230307

REACTIONS (3)
  - Bradycardia [Recovered/Resolved]
  - Cardiac arrest [Recovered/Resolved]
  - Pulseless electrical activity [Recovered/Resolved]

NARRATIVE: CASE EVENT DATE: 20230307
